FAERS Safety Report 5936692-5 (Version None)
Quarter: 2008Q4

REPORT INFORMATION
  Report Type: 
  Country: None (occurrence: None)
  Receive Date: 20081030
  Receipt Date: 20081023
  Transmission Date: 20090506
  Serious: Yes (Other)
  Sender: FDA-Public Use
  Company Number: JP-MERCK-0810USA04663

PATIENT

DRUGS (3)
  1. VASOLAN [Concomitant]
     Route: 065
  2. PEPCID [Suspect]
     Route: 048
  3. DIOVAN [Concomitant]
     Route: 065

REACTIONS (1)
  - RHABDOMYOLYSIS [None]
